FAERS Safety Report 15757403 (Version 1)
Quarter: 2018Q4

REPORT INFORMATION
  Report Type: Report from Study
  Country: PL (occurrence: PL)
  Receive Date: 20181224
  Receipt Date: 20181224
  Transmission Date: 20190205
  Serious: Yes (Other)
  Sender: FDA-Public Use
  Company Number: PHHY2018PL193596

PATIENT
  Sex: Female

DRUGS (1)
  1. IPP [Suspect]
     Active Substance: PANTOPRAZOLE SODIUM
     Indication: GASTROINTESTINAL DISORDER
     Route: 065

REACTIONS (2)
  - Gastric cancer [Unknown]
  - Achlorhydria [Unknown]
